FAERS Safety Report 7984476-9 (Version None)
Quarter: 2011Q4

REPORT INFORMATION
  Report Type: 
  Country: None (occurrence: None)
  Receive Date: 20111214
  Receipt Date: 20111209
  Transmission Date: 20120403
  Serious: Yes (Hospitalization)
  Sender: FDA-Public Use
  Company Number: SP05328

PATIENT
  Age: 46 Year
  Sex: Female

DRUGS (10)
  1. HYDROMORPH CONTIN (SUSTAINED-RELEASE CAPSULE) [Concomitant]
  2. SENOKOT [Concomitant]
  3. RELISTOR [Suspect]
     Dosage: (12 MG), SUBCUTANEOUS)
  4. NALTREXONE HYDROCHLORIDE [Suspect]
     Indication: CONSTIPATION
     Dosage: (AS REQUIRED),SUBCUTANEOUS
     Route: 058
     Dates: start: 20090315, end: 20091024
  5. DILAUDID [Concomitant]
  6. EPIPEN [Concomitant]
  7. ALENDRONATE SODIUM [Concomitant]
  8. NOZINAN [Concomitant]
  9. POLYETHYLENE GLYCOL [Concomitant]
  10. COLACE [Concomitant]

REACTIONS (3)
  - NAUSEA [None]
  - VOMITING [None]
  - NO THERAPEUTIC RESPONSE [None]
